FAERS Safety Report 13064329 (Version 4)
Quarter: 2019Q4

REPORT INFORMATION
  Report Type: Report from Study
  Country: DE (occurrence: DE)
  Receive Date: 20161227
  Receipt Date: 20191003
  Transmission Date: 20200122
  Serious: Yes (Hospitalization, Other)
  Sender: FDA-Public Use
  Company Number: DE-ASTELLAS-2016US045463

PATIENT
  Age: 30 Year
  Sex: Female

DRUGS (2)
  1. TACROLIMUS. [Suspect]
     Active Substance: TACROLIMUS
     Indication: RENAL TRANSPLANT
     Dosage: UNK, ONCE DAILY
     Route: 065
     Dates: start: 20151003, end: 20151003
  2. HYDROCORTISON                      /00028601/ [Concomitant]
     Active Substance: HYDROCORTISONE
     Indication: IMMUNOSUPPRESSANT DRUG THERAPY
     Dosage: 100, 50, UNKNOWN FREQ.
     Route: 065

REACTIONS (4)
  - Vulvovaginal candidiasis [Recovered/Resolved]
  - Exposure during pregnancy [Unknown]
  - Hyperemesis gravidarum [Recovered/Resolved]
  - Hypertensive crisis [Recovered/Resolved]

NARRATIVE: CASE EVENT DATE: 20160929
